FAERS Safety Report 19754784 (Version 1)
Quarter: 2021Q3

REPORT INFORMATION
  Report Type: Spontaneous
  Country: US (occurrence: US)
  Receive Date: 20210827
  Receipt Date: 20210827
  Transmission Date: 20211014
  Serious: Yes (Other)
  Sender: FDA-Public Use
  Company Number: None

PATIENT
  Age: 40 Year
  Sex: Female
  Weight: 95.26 kg

DRUGS (1)
  1. PARAGARD T 380A [Suspect]
     Active Substance: COPPER
     Dates: start: 20170330, end: 20210505

REACTIONS (4)
  - Muscle spasms [None]
  - Device breakage [None]
  - Device expulsion [None]
  - Emotional disorder [None]

NARRATIVE: CASE EVENT DATE: 20210505
